FAERS Safety Report 19743299 (Version 1)
Quarter: 2021Q3

REPORT INFORMATION
  Report Type: Spontaneous
  Country: US (occurrence: US)
  Receive Date: 20210825
  Receipt Date: 20210825
  Transmission Date: 20211014
  Serious: No
  Sender: FDA-Public Use
  Company Number: US-SA-2021SA279065

PATIENT
  Age: 77 Year
  Sex: Female

DRUGS (11)
  1. METRONIDAZOLE. [Concomitant]
     Active Substance: METRONIDAZOLE
  2. BYSTOLIC [Concomitant]
     Active Substance: NEBIVOLOL HYDROCHLORIDE
  3. TACROLIMUS. [Concomitant]
     Active Substance: TACROLIMUS
  4. METHOTREXATE. [Concomitant]
     Active Substance: METHOTREXATE
  5. MONTELUKAST [Concomitant]
     Active Substance: MONTELUKAST SODIUM
  6. NITROFUR [Concomitant]
     Active Substance: NITROFURANTOIN
  7. ATORVASTATIN [Concomitant]
     Active Substance: ATORVASTATIN
  8. DUPIXENT [Suspect]
     Active Substance: DUPILUMAB
     Indication: DERMATITIS ATOPIC
     Dosage: 300 MG, QOW
     Route: 058
     Dates: start: 20210304
  9. CLOBETASOL [Concomitant]
     Active Substance: CLOBETASOL
  10. AZELASTINE;FLUTICASONE [Concomitant]
     Active Substance: AZELASTINE HYDROCHLORIDE\FLUTICASONE PROPIONATE
  11. PENTOXIFYLLINE. [Concomitant]
     Active Substance: PENTOXIFYLLINE

REACTIONS (1)
  - Dermatitis atopic [Not Recovered/Not Resolved]

NARRATIVE: CASE EVENT DATE: 20210818
